FAERS Safety Report 10523836 (Version 1)
Quarter: 2014Q4

REPORT INFORMATION
  Report Type: Spontaneous
  Country: FR (occurrence: FR)
  Receive Date: 20141017
  Receipt Date: 20141017
  Transmission Date: 20150528
  Serious: Yes (Other)
  Sender: FDA-Public Use
  Company Number: FR-ASTRAZENECA-2014SE76882

PATIENT
  Age: 464 Month
  Sex: Male

DRUGS (5)
  1. TERALITHE [Concomitant]
     Active Substance: LITHIUM CARBONATE
     Dosage: FORMULATION: SR, 1200 MG EVERYDAY
  2. QUITAXON [Concomitant]
     Active Substance: DOXEPIN HYDROCHLORIDE
  3. XEROQUEL [Suspect]
     Active Substance: QUETIAPINE FUMARATE
     Indication: MAJOR DEPRESSION
     Route: 048
     Dates: start: 201408
  4. ALPRAZOLAM. [Concomitant]
     Active Substance: ALPRAZOLAM
  5. SEROPLEX [Concomitant]
     Active Substance: ESCITALOPRAM OXALATE
     Indication: MAJOR DEPRESSION

REACTIONS (1)
  - Deep vein thrombosis [Recovering/Resolving]

NARRATIVE: CASE EVENT DATE: 201409
